FAERS Safety Report 8556183-5 (Version None)
Quarter: 2012Q3

REPORT INFORMATION
  Report Type: 
  Country: None (occurrence: None)
  Receive Date: 20120719
  Receipt Date: 20120705
  Transmission Date: 20120928
  Serious: Yes (Hospitalization)
  Sender: FDA-Public Use
  Company Number: DSM-2012-00748

PATIENT
  Age: 73 Year
  Sex: Male

DRUGS (8)
  1. TEMESTA (LORAZEPAM)(LORAZEPAM) [Concomitant]
  2. KARDEGIC (ACETYLSALICYLATE LYSINE)(ACETYLSALICYLATE LYSINE) [Concomitant]
  3. SEVIKAR (OLMESARTAN MEDOXOMIL, AMLODIPINE BESILATE)(TABLET)(OLMESARTA [Suspect]
     Indication: PRODUCT USED FOR UNKNOWN INDICATION
     Dosage: 20/5 MG,ORAL
     Route: 048
     Dates: start: 20111025, end: 20120420
  4. OPTIJECT (IOVERSOL) (INJECTION) (IOVERSOL) [Suspect]
     Indication: ANGIOGRAM
     Dosage: 100 ML (1X) (ONCE), INTRAVENOUS DRIP
     Route: 041
     Dates: start: 20120329, end: 20120329
  5. SPIRIVA (TIOTROPIUM BROMIDE)(TIOTROPIUM BROMIDE) [Concomitant]
  6. EFFEXOR (VENLAFAXINE)(VENLAFAXINE) [Concomitant]
  7. ALDALIX (SPIRONOLACTONE FUROSEMIDE) (CAPSULE) (SPIRONOLACTONE, FUROSEM [Suspect]
     Indication: OEDEMA PERIPHERAL
     Dosage: 50/20 MG (1 IN 1 D),ORAL
     Route: 048
     Dates: start: 20120326, end: 20120420
  8. XATRAL (ALFUZOSIN)(ALFUZOSIN) [Concomitant]

REACTIONS (7)
  - PARAESTHESIA [None]
  - OEDEMA PERIPHERAL [None]
  - HYPONATRAEMIA [None]
  - ELECTROCARDIOGRAM QRS COMPLEX PROLONGED [None]
  - RENAL FAILURE ACUTE [None]
  - HYPERKALAEMIA [None]
  - BUNDLE BRANCH BLOCK LEFT [None]
